FAERS Safety Report 9170744 (Version 1)
Quarter: 2013Q1

REPORT INFORMATION
  Report Type: Spontaneous
  Country: TH (occurrence: None)
  Receive Date: 20130311
  Receipt Date: 20130311
  Transmission Date: 20140127
  Serious: Yes (Life-Threatening, Other)
  Sender: FDA-Public Use
  Company Number: 2013P1002809

PATIENT
  Sex: 0

DRUGS (1)
  1. CEFTRIAXONE [Suspect]

REACTIONS (2)
  - Drug hypersensitivity [None]
  - Anaphylactic shock [None]
